FAERS Safety Report 6691284-8 (Version None)
Quarter: 2010Q2

REPORT INFORMATION
  Report Type: 
  Country: None (occurrence: None)
  Receive Date: 20100422
  Receipt Date: 20100413
  Transmission Date: 20101027
  Serious: Yes (Hospitalization)
  Sender: FDA-Public Use
  Company Number: IT-JNJFOC-20100402992

PATIENT
  Sex: Female

DRUGS (4)
  1. LEVOXACIN [Suspect]
     Indication: BRONCHITIS
     Route: 048
  2. CALCIFEDIOL [Concomitant]
     Route: 065
  3. DELTACORTENE [Concomitant]
     Route: 065
  4. OMEPRAZOLE [Concomitant]
     Route: 065

REACTIONS (5)
  - DIZZINESS [None]
  - DYSKINESIA [None]
  - LIP OEDEMA [None]
  - MALAISE [None]
  - RENAL FAILURE [None]
